FAERS Safety Report 5959083-X (Version None)
Quarter: 2008Q4

REPORT INFORMATION
  Report Type: 
  Country: None (occurrence: None)
  Receive Date: 20081120
  Receipt Date: 20080108
  Transmission Date: 20090506
  Serious: No
  Sender: FDA-Public Use
  Company Number: A0689869A

PATIENT
  Age: 43 Year
  Sex: Female
  Weight: 111.8 kg

DRUGS (5)
  1. BUPROPION HYDROCHLORIDE [Suspect]
     Dosage: 150MG TWICE PER DAY
     Route: 048
  2. NEURONTIN [Concomitant]
  3. ATENOLOL [Concomitant]
  4. OMEPRAZOLE [Concomitant]
  5. ESTRADIOL [Concomitant]

REACTIONS (3)
  - PAROSMIA [None]
  - PRODUCT QUALITY ISSUE [None]
  - SKIN ODOUR ABNORMAL [None]
